FAERS Safety Report 4738234-9 (Version None)
Quarter: 2005Q3

REPORT INFORMATION
  Report Type: 
  Country: None (occurrence: None)
  Receive Date: 20050809
  Receipt Date: 20050804
  Transmission Date: 20060218
  Serious: Yes (Hospitalization)
  Sender: FDA-Public Use
  Company Number: 200516967GDDC

PATIENT
  Age: 84 Year
  Sex: Male
  Weight: 56 kg

DRUGS (10)
  1. RIFADIN [Suspect]
     Indication: PULMONARY TUBERCULOSIS
     Route: 048
     Dates: start: 20050527, end: 20050722
  2. ISCOTIN [Suspect]
     Indication: PULMONARY TUBERCULOSIS
     Route: 048
     Dates: start: 20050527, end: 20050722
  3. CLARITHROMYCIN [Concomitant]
     Indication: CHRONIC RESPIRATORY FAILURE
     Route: 048
     Dates: start: 20030101
  4. THEOLONG [Concomitant]
     Indication: CHRONIC RESPIRATORY FAILURE
     Route: 048
     Dates: start: 20030101
  5. HOKUNALIN [Concomitant]
     Indication: CHRONIC RESPIRATORY FAILURE
     Dates: start: 20030101
  6. MUCOTRON [Concomitant]
     Indication: CHRONIC RESPIRATORY FAILURE
     Route: 048
     Dates: start: 20030101
  7. SINGULAIR [Concomitant]
     Indication: CHRONIC RESPIRATORY FAILURE
     Route: 048
     Dates: start: 20030101
  8. ACECOL [Concomitant]
     Indication: HYPERTENSION
     Route: 048
     Dates: start: 20030101
  9. CONIEL [Concomitant]
     Indication: HYPERTENSION
     Route: 048
     Dates: start: 20030101
  10. ETHAMBUTOL HCL [Concomitant]
     Dosage: DOSE: UNK
     Route: 048
     Dates: start: 20050527, end: 20050722

REACTIONS (3)
  - COUGH [None]
  - DRUG INEFFECTIVE [None]
  - NEPHROTIC SYNDROME [None]
